FAERS Safety Report 12416590 (Version 1)
Quarter: 2016Q2

REPORT INFORMATION
  Report Type: Spontaneous
  Country: GB (occurrence: GB)
  Receive Date: 20160530
  Receipt Date: 20160530
  Transmission Date: 20160815
  Serious: Yes (Other)
  Sender: FDA-Public Use
  Company Number: GB-JNJFOC-20140216311

PATIENT
  Age: 22 Year
  Sex: Female

DRUGS (1)
  1. RISPERDAL CONSTA [Suspect]
     Active Substance: RISPERIDONE
     Indication: PSYCHOTIC DISORDER
     Route: 030
     Dates: start: 201311, end: 201401

REACTIONS (7)
  - Extrapyramidal disorder [Recovered/Resolved]
  - Memory impairment [Unknown]
  - Wrong technique in product usage process [Unknown]
  - Suspiciousness [Unknown]
  - Mental impairment [Unknown]
  - Hallucination, auditory [Unknown]
  - Anger [Unknown]
